FAERS Safety Report 26102636 (Version 1)
Quarter: 2025Q4

REPORT INFORMATION
  Report Type: Spontaneous
  Country: US (occurrence: US)
  Receive Date: 20251128
  Receipt Date: 20251128
  Transmission Date: 20260118
  Serious: Yes (Hospitalization)
  Sender: AMGEN
  Company Number: US-AMGEN-USASP2025230979

PATIENT

DRUGS (1)
  1. INFLIXIMAB [Suspect]
     Active Substance: INFLIXIMAB
     Indication: Colitis ulcerative
     Dosage: UNK MG/KG
     Route: 065

REACTIONS (4)
  - Clostridium difficile infection [Unknown]
  - C-reactive protein abnormal [Unknown]
  - Frequent bowel movements [Unknown]
  - Treatment failure [Unknown]
